FAERS Safety Report 22400102 (Version 3)
Quarter: 2023Q2

REPORT INFORMATION
  Report Type: Spontaneous
  Country: AT (occurrence: AT)
  Receive Date: 20230602
  Receipt Date: 20230614
  Transmission Date: 20230722
  Serious: Yes (Death)
  Sender: FDA-Public Use
  Company Number: AT-DSJP-DSE-2023-120944

PATIENT
  Age: 52 Year
  Sex: Male
  Weight: 68 kg

DRUGS (3)
  1. ENHERTU [Suspect]
     Active Substance: FAM-TRASTUZUMAB DERUXTECAN-NXKI
     Indication: Rectal adenocarcinoma
     Dosage: 6.4 MG/KG, CYCLIC
     Route: 065
     Dates: start: 20230516, end: 20230516
  2. ENHERTU [Suspect]
     Active Substance: FAM-TRASTUZUMAB DERUXTECAN-NXKI
     Indication: Rectal adenocarcinoma
  3. UNSPECIFIED INGREDIENT [Concomitant]
     Active Substance: UNSPECIFIED INGREDIENT
     Indication: Pain
     Dosage: UNK
     Route: 065

REACTIONS (3)
  - Rectal cancer metastatic [Fatal]
  - General physical health deterioration [Unknown]
  - Off label use [Recovered/Resolved]

NARRATIVE: CASE EVENT DATE: 20230516
